FAERS Safety Report 9831680 (Version 2)
Quarter: 2014Q1

REPORT INFORMATION
  Report Type: Report from Study
  Country: US (occurrence: US)
  Receive Date: 20140121
  Receipt Date: 20140121
  Transmission Date: 20141002
  Serious: Yes (Death)
  Sender: FDA-Public Use
  Company Number: US-ROCHE-1279105

PATIENT
  Sex: Male

DRUGS (11)
  1. AVASTIN [Suspect]
     Indication: NEOPLASM MALIGNANT
     Dosage: DATE OF LAST DOSE: 09/SEP/2013; 5MG/KG;
     Route: 042
     Dates: start: 20130909, end: 20131009
  2. AVASTIN [Suspect]
     Route: 042
     Dates: start: 20131010
  3. TARCEVA [Suspect]
     Indication: NEOPLASM MALIGNANT
     Route: 048
     Dates: start: 20130908
  4. DEXAMETHASONE [Concomitant]
     Route: 042
  5. DEXAMETHASONE [Concomitant]
     Route: 042
  6. NORMAL SALINE [Concomitant]
     Route: 042
  7. BENADRYL (UNITED STATES) [Concomitant]
     Route: 048
  8. BENADRYL (UNITED STATES) [Concomitant]
     Route: 048
  9. FAMOTIDINE [Concomitant]
     Route: 042
  10. ONDANSETRON [Concomitant]
     Route: 042
  11. CARBOPLATIN [Concomitant]
     Route: 065

REACTIONS (6)
  - Multi-organ failure [Fatal]
  - Neoplasm malignant [Fatal]
  - Hiccups [Unknown]
  - Blood pressure abnormal [Unknown]
  - Vomiting [Unknown]
  - Blood pressure increased [Unknown]
